FAERS Safety Report 6992692-8 (Version None)
Quarter: 2010Q3

REPORT INFORMATION
  Report Type: 
  Country: None (occurrence: None)
  Receive Date: 20100917
  Receipt Date: 20100909
  Transmission Date: 20110219
  Serious: Yes (Other)
  Sender: FDA-Public Use
  Company Number: JP-MERCK-1006USA00162

PATIENT
  Age: 47 Year
  Sex: Male

DRUGS (17)
  1. EMEND [Suspect]
     Indication: PROPHYLAXIS OF NAUSEA AND VOMITING
     Route: 048
     Dates: start: 20100518, end: 20100518
  2. EMEND [Suspect]
     Route: 048
     Dates: start: 20100519, end: 20100520
  3. NAVELBINE [Suspect]
     Indication: CHEMOTHERAPY
     Route: 042
     Dates: start: 20100518, end: 20100518
  4. KYTRIL [Suspect]
     Indication: CHEMOTHERAPY
     Route: 042
     Dates: start: 20100518, end: 20100520
  5. DECADRON [Suspect]
     Indication: CHEMOTHERAPY
     Route: 041
     Dates: start: 20100518, end: 20100520
  6. LASIX [Concomitant]
     Route: 065
     Dates: start: 20100518, end: 20100518
  7. BRIPLATIN [Suspect]
     Indication: CHEMOTHERAPY
     Route: 042
     Dates: start: 20100518, end: 20100518
  8. CLEANAL [Concomitant]
     Route: 065
     Dates: start: 20100415, end: 20100524
  9. MOBIC [Concomitant]
     Route: 065
     Dates: start: 20100415, end: 20100524
  10. GASTER D [Concomitant]
     Route: 065
     Dates: start: 20100415, end: 20100524
  11. MUCOSTA [Concomitant]
     Route: 065
     Dates: start: 20100415, end: 20100524
  12. AMOBAN [Concomitant]
     Route: 065
     Dates: start: 20100420, end: 20100524
  13. SHAKUYAKU-KANZO-TO [Concomitant]
     Route: 065
     Dates: start: 20100519, end: 20100524
  14. PRIMPERAN TAB [Concomitant]
     Route: 065
     Dates: start: 20100522, end: 20100524
  15. MAGMITT [Concomitant]
     Route: 065
     Dates: start: 20100522
  16. CALONAL [Concomitant]
     Route: 065
     Dates: start: 20100511, end: 20100514
  17. CALONAL [Concomitant]
     Route: 065
     Dates: start: 20100526

REACTIONS (4)
  - DYSGEUSIA [None]
  - LIVER DISORDER [None]
  - NEUROPATHY PERIPHERAL [None]
  - RENAL DISORDER [None]
